FAERS Safety Report 5792580-9 (Version None)
Quarter: 2008Q2

REPORT INFORMATION
  Report Type: 
  Country: None (occurrence: None)
  Receive Date: 20080626
  Receipt Date: 20080617
  Transmission Date: 20081010
  Serious: Yes (Other)
  Sender: FDA-Public Use
  Company Number: GB-AMGEN-US288345

PATIENT
  Age: 80 Year
  Sex: Female

DRUGS (1)
  1. ENBREL [Suspect]
     Indication: DRUG USE FOR UNKNOWN INDICATION
     Dosage: UNKNOWN
     Route: 030

REACTIONS (5)
  - CONDITION AGGRAVATED [None]
  - INJECTION SITE RASH [None]
  - RASH [None]
  - RASH MORBILLIFORM [None]
  - SJOGREN'S SYNDROME [None]
